FAERS Safety Report 9749514 (Version 3)
Quarter: 2014Q1

REPORT INFORMATION
  Report Type: Spontaneous
  Country: US (occurrence: US)
  Receive Date: 20131212
  Receipt Date: 20140224
  Transmission Date: 20141002
  Serious: Yes (Death, Hospitalization, Other)
  Sender: FDA-Public Use
  Company Number: US-GILEAD-2013-0089762

PATIENT
  Age: 59 Year
  Sex: Male

DRUGS (33)
  1. LETAIRIS [Suspect]
     Indication: PULMONARY ARTERIAL HYPERTENSION
     Dosage: 5 MG, UNK
     Route: 048
     Dates: start: 20120615
  2. BUMETANIDE [Concomitant]
  3. BUMETANIDE [Concomitant]
  4. FLUTICASONE [Concomitant]
  5. FLUTICASONE [Concomitant]
  6. POTASSIUM CL [Concomitant]
  7. POTASSIUM CL [Concomitant]
  8. JANUVIA [Concomitant]
  9. JANUVIA [Concomitant]
  10. MYFORTIC [Concomitant]
  11. MYFORTIC [Concomitant]
  12. CLOPIDOGREL [Concomitant]
  13. CLOPIDOGREL [Concomitant]
  14. TAMSULOSIN [Concomitant]
  15. TAMSULOSIN [Concomitant]
  16. GLIPIZIDE [Concomitant]
  17. ASPIRIN [Concomitant]
  18. ASPIRIN [Concomitant]
  19. PRAVASTATIN [Concomitant]
  20. PRAVASTATIN [Concomitant]
  21. CALCIUM/VITAMIN D                  /01204201/ [Concomitant]
  22. SENSIPAR [Concomitant]
  23. SENSIPAR [Concomitant]
  24. NIFEDIPINE [Concomitant]
  25. PROGRAF [Concomitant]
  26. PROGRAF [Concomitant]
  27. HYDROCHLOROTHIAZIDE [Concomitant]
  28. HYDROCHLOROTHIAZIDE [Concomitant]
  29. MAGNESIUM [Concomitant]
  30. MAGNESIUM [Concomitant]
  31. GLIPIZDE [Concomitant]
  32. CALCIUM/VITAMIN D                  /01204201/ [Concomitant]
  33. NIFEDIPINE [Concomitant]

REACTIONS (1)
  - Pneumonia fungal [Fatal]
